FAERS Safety Report 12220652 (Version 2)
Quarter: 2016Q2

REPORT INFORMATION
  Report Type: Report from Study
  Country: BR (occurrence: BR)
  Receive Date: 20160330
  Receipt Date: 20160413
  Transmission Date: 20160815
  Serious: Yes (Hospitalization, Other)
  Sender: FDA-Public Use
  Company Number: PHHY2016BR040644

PATIENT
  Sex: Female
  Weight: 99 kg

DRUGS (3)
  1. FORASEQ [Suspect]
     Active Substance: BUDESONIDE\FORMOTEROL FUMARATE
     Indication: BRONCHITIS
     Dosage: 2 DF (FORMOTEROL FUMARATE12 MCG,  BUDESONIDE 400 MCG) (1 FROM EACH TREATMENT), QD
     Route: 055
  2. ATENOLOL. [Concomitant]
     Active Substance: ATENOLOL
     Indication: HYPERTENSION
     Dosage: 1 DF, QD STARTED 33 YEARS AGO
     Route: 048
  3. LOSARTAN. [Concomitant]
     Active Substance: LOSARTAN
     Indication: HYPERTENSION
     Dosage: 1 DF, QD STARTED 33 YEARS AGO
     Route: 048

REACTIONS (4)
  - Gastrointestinal carcinoma [Recovering/Resolving]
  - Intestinal haemorrhage [Recovering/Resolving]
  - Bronchitis [Recovered/Resolved]
  - Weight increased [Recovering/Resolving]

NARRATIVE: CASE EVENT DATE: 201409
